FAERS Safety Report 8835399 (Version 1)
Quarter: 2012Q4

REPORT INFORMATION
  Report Type: 
  Country: US (occurrence: US)
  Receive Date: 20121011
  Receipt Date: 20121011
  Transmission Date: 20130627
  Serious: Yes (Hospitalization)
  Sender: FDA-Public Use
  Company Number: US-B.I. PHARMACEUTICALS,INC./RIDGEFIELD-2012-BP-24611BP

PATIENT
  Age: 78 Year
  Sex: Male

DRUGS (3)
  1. PRADAXA [Suspect]
     Indication: PRODUCT USED FOR UNKNOWN INDICATION
  2. XARELTO (RIVAROXABAN) [Suspect]
     Indication: ATRIAL FIBRILLATION
     Dosage: 20 mg
     Route: 048
  3. XARELTO (RIVAROXABAN) [Suspect]
     Indication: CEREBROVASCULAR ACCIDENT PROPHYLAXIS

REACTIONS (2)
  - Ischaemic stroke [Unknown]
  - Visual impairment [Unknown]
